FAERS Safety Report 4469633-0 (Version None)
Quarter: 2004Q4

REPORT INFORMATION
  Report Type: 
  Country: None (occurrence: None)
  Receive Date: 20041008
  Receipt Date: 20040928
  Transmission Date: 20050328
  Serious: Yes (Hospitalization, Disabling)
  Sender: FDA-Public Use
  Company Number: PHEH2004US10522

PATIENT
  Age: 46 Year
  Sex: Female

DRUGS (2)
  1. AREDIA [Suspect]
     Indication: BREAST CANCER METASTATIC
     Route: 042
  2. TAMOXIFEN CITRATE [Concomitant]

REACTIONS (11)
  - ACTINOMYCOSIS [None]
  - BACTERIAL CULTURE [None]
  - BONE PAIN [None]
  - ORAL PAIN [None]
  - ORAL SURGERY [None]
  - OSTEOMYELITIS [None]
  - OSTEONECROSIS [None]
  - SEQUESTRECTOMY [None]
  - SWELLING [None]
  - TOOTH EXTRACTION [None]
  - WOUND DEBRIDEMENT [None]
